FAERS Safety Report 8569970-4 (Version None)
Quarter: 2012Q3

REPORT INFORMATION
  Report Type: 
  Country: None (occurrence: None)
  Receive Date: 20120803
  Receipt Date: 20120223
  Transmission Date: 20120928
  Serious: No
  Sender: FDA-Public Use
  Company Number: US-ABBOTT-12P-163-0907766-00

PATIENT
  Sex: Male
  Weight: 81.72 kg

DRUGS (8)
  1. ASPIRIN [Concomitant]
     Dosage: 1/2 TAB OF 325 MG DAILY
  2. LEVOTHYROXINE SODIUM [Concomitant]
     Indication: PRODUCT USED FOR UNKNOWN INDICATION
     Dosage: EVERY DAY
     Route: 048
  3. ATENOLOL [Concomitant]
     Indication: PRODUCT USED FOR UNKNOWN INDICATION
     Dosage: EVERY DAY
     Route: 048
  4. PRAVASTATIN [Concomitant]
     Indication: PRODUCT USED FOR UNKNOWN INDICATION
     Dosage: EVERY DAY
     Route: 048
  5. ASPIRIN [Concomitant]
     Indication: PRODUCT USED FOR UNKNOWN INDICATION
     Dosage: AT BED TIME
  6. NIASPAN [Suspect]
     Indication: CORONARY ARTERY OCCLUSION
     Dosage: AT BED TIME
     Route: 048
     Dates: start: 20090101
  7. LISINOPRIL [Concomitant]
     Indication: PRODUCT USED FOR UNKNOWN INDICATION
     Dosage: EVERY DAY
     Route: 048
  8. ASPIRIN [Concomitant]
     Dosage: AT BEDTIME

REACTIONS (1)
  - PRURITUS [None]
